FAERS Safety Report 9283154 (Version 1)
Quarter: 2013Q2

REPORT INFORMATION
  Report Type: Spontaneous
  Country: US (occurrence: US)
  Receive Date: 20130510
  Receipt Date: 20130510
  Transmission Date: 20140414
  Serious: No
  Sender: FDA-Public Use
  Company Number: US-GLAXOSMITHKLINE-A0983259A

PATIENT
  Sex: Female

DRUGS (11)
  1. TYKERB [Suspect]
     Indication: PRODUCT USED FOR UNKNOWN INDICATION
     Dosage: 1500MG PER DAY
     Route: 048
  2. ZOCOR [Concomitant]
     Dosage: 10MG UNKNOWN
     Route: 048
  3. PROTONIX [Concomitant]
     Route: 048
  4. LOMOTIL [Concomitant]
     Route: 048
  5. ZYRTEC [Concomitant]
     Route: 048
  6. FEMARA [Concomitant]
     Route: 048
  7. ASACOL [Concomitant]
     Route: 048
  8. IMURAN [Concomitant]
     Route: 048
  9. CLARITIN [Concomitant]
     Route: 048
  10. MULTIVITAMIN WOMEN [Concomitant]
  11. HERCEPTIN [Concomitant]

REACTIONS (1)
  - Diarrhoea [Unknown]
